FAERS Safety Report 8501589 (Version 2)
Quarter: 2013Q2

REPORT INFORMATION
  Report Type: Spontaneous
  Country: US (occurrence: None)
  Receive Date: 20120327
  Receipt Date: 20120709
  Transmission Date: 20140414
  Serious: Yes (Other)
  Sender: FDA-Public Use
  Company Number: PHHY2011US32800

PATIENT
  Age: 67 Year
  Sex: Male

DRUGS (1)
  1. GLEEVEC [Suspect]
     Indication: CHRONIC MYELOID LEUKAEMIA
     Dosage: 400 MG, DAILY, ORAL
     Route: 048
     Dates: start: 20110321

REACTIONS (12)
  - BRONCHITIS [None]
  - DYSPNOEA [None]
  - NAUSEA [None]
  - VOMITING [None]
  - SWELLING FACE [None]
  - LIP PAIN [None]
  - NASOPHARYNGITIS [None]
  - OEDEMA [None]
  - MYALGIA [None]
  - INFECTION [None]
  - Eye oedema [None]
  - Oedema peripheral [None]
